FAERS Safety Report 5785911-7 (Version None)
Quarter: 2008Q2

REPORT INFORMATION
  Report Type: 
  Country: None (occurrence: None)
  Receive Date: 20080620
  Receipt Date: 20080620
  Transmission Date: 20081010
  Serious: No
  Sender: FDA-Public Use
  Company Number: None

PATIENT
  Age: 30 Year
  Sex: Female
  Weight: 54.4316 kg

DRUGS (1)
  1. ZITHROMAX [Suspect]
     Indication: UPPER RESPIRATORY TRACT INFECTION
     Dosage: 500MG DAILY PO
     Route: 048
     Dates: start: 20080609, end: 20080611

REACTIONS (1)
  - INSOMNIA [None]
